APPROVED DRUG PRODUCT: BACLOFEN
Active Ingredient: BACLOFEN
Strength: 1MG/ML
Dosage Form/Route: INJECTABLE;INTRATHECAL
Application: A210315 | Product #001 | TE Code: AP
Applicant: MAIA PHARMACEUTICALS INC
Approved: Jul 30, 2019 | RLD: No | RS: No | Type: RX